FAERS Safety Report 7469632-0 (Version None)
Quarter: 2011Q2

REPORT INFORMATION
  Report Type: 
  Country: None (occurrence: None)
  Receive Date: 20110429
  Receipt Date: 20110515
  Transmission Date: 20111010
  Serious: Yes (Other)
  Sender: FDA-Public Use
  Company Number: 031750

PATIENT
  Sex: Female

DRUGS (2)
  1. CIMZIA [Suspect]
     Indication: RHEUMATOID ARTHRITIS
     Dosage: (2 SHOTS SUBCUTANEOUS), (ONE SHOT SUBCUTANEOUS)
     Route: 058
     Dates: start: 20110323, end: 20110323
  2. CIMZIA [Suspect]
     Indication: RHEUMATOID ARTHRITIS
     Dosage: (2 SHOTS SUBCUTANEOUS), (ONE SHOT SUBCUTANEOUS)
     Route: 058
     Dates: start: 20110101, end: 20110101

REACTIONS (4)
  - SKIN EXFOLIATION [None]
  - ORAL CANDIDIASIS [None]
  - URINARY TRACT INFECTION [None]
  - RASH ERYTHEMATOUS [None]
